FAERS Safety Report 10214695 (Version 2)
Quarter: 2014Q2

REPORT INFORMATION
  Report Type: Spontaneous
  Country: US (occurrence: US)
  Receive Date: 20140603
  Receipt Date: 20140620
  Transmission Date: 20141212
  Serious: No
  Sender: FDA-Public Use
  Company Number: US-009507513-1406USA001334

PATIENT
  Sex: Female
  Weight: 79.37 kg

DRUGS (3)
  1. OXYTROL FOR WOMEN [Suspect]
     Indication: POLLAKIURIA
     Dosage: 1 DF, Q4D
     Route: 062
     Dates: start: 201402
  2. OXYTROL FOR WOMEN [Suspect]
     Indication: HYPERTONIC BLADDER
  3. CELEXA [Concomitant]
     Indication: DEPRESSION
     Dosage: UNK, UNKNOWN

REACTIONS (2)
  - Rash [Unknown]
  - Product adhesion issue [Unknown]
